FAERS Safety Report 17435395 (Version 1)
Quarter: 2020Q1

REPORT INFORMATION
  Report Type: Spontaneous
  Country: GB (occurrence: GB)
  Receive Date: 20200219
  Receipt Date: 20200219
  Transmission Date: 20200409
  Serious: Yes (Hospitalization, Other)
  Sender: FDA-Public Use
  Company Number: GB-SA-2020SA041742

PATIENT
  Sex: Female

DRUGS (2)
  1. DUPILUMAB [Suspect]
     Active Substance: DUPILUMAB
     Indication: DERMATITIS ATOPIC
  2. METHOTREXATE. [Concomitant]
     Active Substance: METHOTREXATE

REACTIONS (2)
  - Asthma [Unknown]
  - Toxic leukoencephalopathy [Unknown]
